FAERS Safety Report 13931567 (Version 2)
Quarter: 2017Q4

REPORT INFORMATION
  Report Type: Spontaneous
  Country: AU (occurrence: AU)
  Receive Date: 20170904
  Receipt Date: 20171020
  Transmission Date: 20180320
  Serious: Yes (Other)
  Sender: FDA-Public Use
  Company Number: AU-AMGEN-AUSSP2017131549

PATIENT
  Age: 79 Year
  Sex: Male
  Weight: 70.8 kg

DRUGS (15)
  1. ENDEP [Concomitant]
     Active Substance: AMITRIPTYLINE HYDROCHLORIDE
     Dosage: CREAM APPLIED LOCALLY
  2. ATOZET [Concomitant]
     Active Substance: ATORVASTATIN CALCIUM\EZETIMIBE
     Dosage: 10/80
  3. MEGAFOL [Concomitant]
     Active Substance: FOLIC ACID
     Dosage: UNK, QD
  4. REPATHA [Suspect]
     Active Substance: EVOLOCUMAB
     Dosage: 140 MG, QMO
     Route: 058
  5. MOVICOL [Suspect]
     Active Substance: POLYETHYLENE GLYCOL 3350\POTASSIUM CHLORIDE\SODIUM BICARBONATE\SODIUM CHLORIDE
     Indication: PRODUCT USED FOR UNKNOWN INDICATION
     Dosage: UNK
     Route: 065
  6. BISACODYL. [Concomitant]
     Active Substance: BISACODYL
     Dosage: UNK, QD
  7. MESALAZINE [Concomitant]
     Active Substance: MESALAMINE
     Dosage: UNK
  8. METAMUCIL [Concomitant]
     Active Substance: PLANTAGO SEED
     Dosage: UNK
  9. REPATHA [Suspect]
     Active Substance: EVOLOCUMAB
     Indication: BLOOD CHOLESTEROL INCREASED
     Dosage: 140 MG, Q2WK
     Route: 058
     Dates: start: 201611
  10. DUODART [Concomitant]
     Active Substance: DUTASTERIDE\TAMSULOSIN
     Dosage: 500/400
  11. LYRICA [Concomitant]
     Active Substance: PREGABALIN
     Indication: PAIN
     Dosage: UNK UNK, QHS
  12. PROBIOTIC [Concomitant]
     Active Substance: PROBIOTICS NOS
     Dosage: UNK
  13. ASPIRIN. [Concomitant]
     Active Substance: ASPIRIN
     Dosage: 25 MG, QD
  14. SOFRADEX [Concomitant]
     Active Substance: DEXAMETHASONE\FRAMYCETIN SULFATE\GRAMICIDIN
  15. FOLIC ACID. [Concomitant]
     Active Substance: FOLIC ACID
     Dosage: UNK

REACTIONS (14)
  - Renal cyst [Unknown]
  - Constipation [Recovering/Resolving]
  - Colitis [Unknown]
  - Renal impairment [Unknown]
  - Hydroureter [Unknown]
  - Osteoarthritis [Unknown]
  - Proctalgia [Unknown]
  - Prostate cancer metastatic [Unknown]
  - Intervertebral disc degeneration [Unknown]
  - Hydronephrosis [Unknown]
  - Scrotal pain [Unknown]
  - Sleep disorder due to a general medical condition [Unknown]
  - Osteitis deformans [Unknown]
  - Ureteric obstruction [Unknown]

NARRATIVE: CASE EVENT DATE: 20170802
